FAERS Safety Report 17557416 (Version 1)
Quarter: 2020Q1

REPORT INFORMATION
  Report Type: Spontaneous
  Country: US (occurrence: US)
  Receive Date: 20200318
  Receipt Date: 20200318
  Transmission Date: 20200409
  Serious: No
  Sender: FDA-Public Use
  Company Number: NVSC2020US074913

PATIENT
  Age: 18 Month
  Sex: Male

DRUGS (2)
  1. ZOLGENSMA [Suspect]
     Active Substance: ONASEMNOGENE ABEPARVOVEC-XIOI
     Indication: SPINAL MUSCULAR ATROPHY
     Dosage: UNK, ONCE/SINGLE IN THE MORNING)
     Route: 042
     Dates: start: 20200310
  2. PREDNISOLONE. [Concomitant]
     Active Substance: PREDNISOLONE
     Indication: PRODUCT USED FOR UNKNOWN INDICATION
     Dosage: 1 MG/KG
     Route: 065

REACTIONS (6)
  - Fatigue [Unknown]
  - Cough [Unknown]
  - Appetite disorder [Unknown]
  - Pyrexia [Unknown]
  - Lethargy [Unknown]
  - Tremor [Unknown]

NARRATIVE: CASE EVENT DATE: 20200310
